FAERS Safety Report 12576044 (Version 3)
Quarter: 2016Q3

REPORT INFORMATION
  Report Type: Spontaneous
  Country: CY (occurrence: CY)
  Receive Date: 20160720
  Receipt Date: 20160727
  Transmission Date: 20161109
  Serious: Yes (Hospitalization)
  Sender: FDA-Public Use
  Company Number: PHHY2016CY097524

PATIENT
  Age: 6 Year
  Sex: Female

DRUGS (1)
  1. EXJADE [Suspect]
     Active Substance: DEFERASIROX
     Indication: THALASSAEMIA BETA
     Dosage: 30 MG/KG, QD
     Route: 048
     Dates: start: 2014, end: 20160708

REACTIONS (11)
  - Abdominal tenderness [Unknown]
  - Melaena [Unknown]
  - Fatigue [Unknown]
  - Protein urine present [Recovering/Resolving]
  - Abdominal pain [Unknown]
  - Abdominal pain upper [Unknown]
  - Pyrexia [Recovering/Resolving]
  - Hepatic enzyme increased [Recovering/Resolving]
  - Gastric haemorrhage [Recovering/Resolving]
  - Back pain [Recovering/Resolving]
  - International normalised ratio increased [Recovering/Resolving]

NARRATIVE: CASE EVENT DATE: 20160421
